FAERS Safety Report 19078646 (Version 1)
Quarter: 2021Q1

REPORT INFORMATION
  Report Type: Spontaneous
  Country: CN (occurrence: CN)
  Receive Date: 20210331
  Receipt Date: 20210331
  Transmission Date: 20210420
  Serious: Yes (Hospitalization)
  Sender: FDA-Public Use
  Company Number: CN-UCBSA-2021013848

PATIENT
  Age: 3 Year
  Sex: Male
  Weight: 12.5 kg

DRUGS (4)
  1. KEPPRA [Suspect]
     Active Substance: LEVETIRACETAM
     Dosage: 2 MILLILITER, 2X/DAY (BID)
     Route: 048
     Dates: start: 20210101, end: 20210305
  2. TOPAMAX [Concomitant]
     Active Substance: TOPIRAMATE
     Indication: EPILEPSY
     Dosage: 12.5 MILLIGRAM, ONCE DAILY (QD)
     Route: 048
     Dates: start: 20190114, end: 20201231
  3. KEPPRA [Suspect]
     Active Substance: LEVETIRACETAM
     Indication: EPILEPSY
     Dosage: 1.5 MILLILITER, 2X/DAY (BID)
     Route: 048
     Dates: start: 20180927, end: 20201231
  4. TOPAMAX [Concomitant]
     Active Substance: TOPIRAMATE
     Dosage: 6.25 MILLIGRAM, 2X/DAY (BID)
     Route: 048
     Dates: start: 20210101, end: 20210305

REACTIONS (1)
  - Tooth hypoplasia [Recovered/Resolved with Sequelae]

NARRATIVE: CASE EVENT DATE: 20210305
